FAERS Safety Report 18928420 (Version 7)
Quarter: 2021Q2

REPORT INFORMATION
  Report Type: Spontaneous
  Country: PL (occurrence: PL)
  Receive Date: 20210223
  Receipt Date: 20210424
  Transmission Date: 20210717
  Serious: Yes (Other)
  Sender: FDA-Public Use
  Company Number: NVSC2021PL041429

PATIENT
  Age: 58 Year
  Sex: Male

DRUGS (17)
  1. NINTEDANIB [Suspect]
     Active Substance: NINTEDANIB
     Indication: CHEMOTHERAPY
     Dosage: UNK, CYCLIC
     Route: 065
     Dates: start: 201812, end: 202001
  2. PEMETREXED. [Suspect]
     Active Substance: PEMETREXED
     Indication: METASTASES TO BONE
  3. DOCETAXEL. [Suspect]
     Active Substance: DOCETAXEL
     Indication: LUNG CARCINOMA CELL TYPE UNSPECIFIED STAGE IV
  4. NINTEDANIB [Suspect]
     Active Substance: NINTEDANIB
     Indication: LUNG ADENOCARCINOMA
  5. DOCETAXEL. [Suspect]
     Active Substance: DOCETAXEL
     Indication: CHEMOTHERAPY
     Dosage: UNK, CYCLIC
     Route: 065
     Dates: start: 201812, end: 202001
  6. GEMCITABINE. [Suspect]
     Active Substance: GEMCITABINE
     Indication: LUNG CARCINOMA CELL TYPE UNSPECIFIED STAGE IV
     Dosage: 1000 MG / M2 ON DAYS 1, 8, 15, EVERY 28 DAYS
     Route: 065
     Dates: start: 202002, end: 202003
  7. PEMETREXED. [Suspect]
     Active Substance: PEMETREXED
     Indication: LUNG CARCINOMA CELL TYPE UNSPECIFIED STAGE IV
     Dosage: UNK, CYCLIC (6 CYCLES)
     Route: 065
     Dates: start: 201612, end: 201704
  8. PEMETREXED. [Suspect]
     Active Substance: PEMETREXED
     Indication: LUNG ADENOCARCINOMA STAGE IV
  9. DOCETAXEL. [Suspect]
     Active Substance: DOCETAXEL
     Indication: METASTASES TO BONE
  10. DOCETAXEL. [Suspect]
     Active Substance: DOCETAXEL
     Indication: LUNG ADENOCARCINOMA
  11. CISPLATIN. [Suspect]
     Active Substance: CISPLATIN
     Indication: LUNG CARCINOMA CELL TYPE UNSPECIFIED STAGE IV
     Dosage: UNK, CYCLIC (6 CYCLES)
     Route: 065
     Dates: start: 201612, end: 201704
  12. NINTEDANIB [Suspect]
     Active Substance: NINTEDANIB
     Indication: LUNG CARCINOMA CELL TYPE UNSPECIFIED STAGE IV
  13. DOCETAXEL. [Suspect]
     Active Substance: DOCETAXEL
     Indication: LUNG ADENOCARCINOMA STAGE IV
  14. CISPLATIN. [Suspect]
     Active Substance: CISPLATIN
     Indication: METASTASES TO BONE
  15. NINTEDANIB [Suspect]
     Active Substance: NINTEDANIB
     Indication: METASTASES TO BONE
  16. NINTEDANIB [Suspect]
     Active Substance: NINTEDANIB
     Indication: LUNG ADENOCARCINOMA STAGE IV
  17. CISPLATIN. [Suspect]
     Active Substance: CISPLATIN
     Indication: LUNG ADENOCARCINOMA STAGE IV

REACTIONS (15)
  - Transaminases increased [Recovered/Resolved]
  - Malaise [Unknown]
  - Disease progression [Unknown]
  - Pulmonary embolism [Unknown]
  - Blood pressure increased [Recovered/Resolved]
  - Thrombocytopenia [Unknown]
  - Asthenia [Unknown]
  - Decreased appetite [Unknown]
  - Neutropenia [Unknown]
  - Upper respiratory tract infection [Unknown]
  - Nausea [Unknown]
  - General physical health deterioration [Unknown]
  - Nephropathy toxic [Unknown]
  - Blood creatinine increased [Unknown]
  - Abdominal pain [Unknown]

NARRATIVE: CASE EVENT DATE: 202003
